FAERS Safety Report 13439106 (Version 3)
Quarter: 2018Q4

REPORT INFORMATION
  Report Type: Spontaneous
  Country: US (occurrence: US)
  Receive Date: 20170412
  Receipt Date: 20181228
  Transmission Date: 20190204
  Serious: Yes (Other)
  Sender: FDA-Public Use
  Company Number: US-ACTELION-A-US2017-152361

PATIENT
  Age: 57 Year
  Sex: Female

DRUGS (1)
  1. VALCHLOR [Suspect]
     Active Substance: MECHLORETHAMINE
     Indication: MYCOSIS FUNGOIDES
     Dosage: THIN FILM 3/WEEK
     Route: 061
     Dates: start: 20170310

REACTIONS (3)
  - Malignant neoplasm progression [Not Recovered/Not Resolved]
  - Application site discolouration [Unknown]
  - Application site pruritus [Unknown]
